FAERS Safety Report 17414982 (Version 2)
Quarter: 2020Q1

REPORT INFORMATION
  Report Type: Report from Study
  Country: US (occurrence: US)
  Receive Date: 20200213
  Receipt Date: 20200319
  Transmission Date: 20200409
  Serious: Yes (Death, Hospitalization, Other)
  Sender: FDA-Public Use
  Company Number: US-RETROPHIN, INC.-2020RTN00020

PATIENT
  Sex: Female
  Weight: 2.86 kg

DRUGS (1)
  1. CHOLIC ACID [Suspect]
     Active Substance: CHOLIC ACID
     Indication: ENZYME ABNORMALITY
     Dosage: 25 MG, 1X/DAY
     Route: 048
     Dates: start: 20191027, end: 20200124

REACTIONS (7)
  - Coagulopathy [Unknown]
  - Feeding intolerance [Not Recovered/Not Resolved]
  - Gastrostomy tube site complication [Unknown]
  - Failure to thrive [Unknown]
  - Enzyme abnormality [Fatal]
  - Hepatic failure [Not Recovered/Not Resolved]
  - Malnutrition [Unknown]
